FAERS Safety Report 5503946-6 (Version None)
Quarter: 2007Q4

REPORT INFORMATION
  Report Type: 
  Country: None (occurrence: None)
  Receive Date: 20071030
  Receipt Date: 20071030
  Transmission Date: 20080405
  Serious: Yes (Hospitalization, Other)
  Sender: FDA-Public Use
  Company Number: None

PATIENT
  Age: 52 Year
  Sex: Female
  Weight: 70 kg

DRUGS (1)
  1. ARTEQUIN -ARTESIMINE 200+MEFLOUQUIN 600MG [Suspect]
     Indication: MALARIA
     Dosage: ONE ARTESIMINE+ ONE MEFLOUQUIN DAILY PO
     Route: 048
     Dates: start: 20071020, end: 20071023

REACTIONS (7)
  - ASTHENIA [None]
  - DIZZINESS [None]
  - FLUSHING [None]
  - HYPOAESTHESIA [None]
  - HYPOAESTHESIA FACIAL [None]
  - PALPITATIONS [None]
  - PANIC ATTACK [None]
